FAERS Safety Report 5694441-2 (Version None)
Quarter: 2008Q2

REPORT INFORMATION
  Report Type: 
  Country: None (occurrence: None)
  Receive Date: 20080404
  Receipt Date: 20080326
  Transmission Date: 20081010
  Serious: Yes (Other)
  Sender: FDA-Public Use
  Company Number: PHHY2008JP03861

PATIENT

DRUGS (1)
  1. ZOMETA [Suspect]
     Dosage: 4 MG
     Route: 042

REACTIONS (1)
  - LIVER DISORDER [None]
